FAERS Safety Report 6386146-X (Version None)
Quarter: 2009Q4

REPORT INFORMATION
  Report Type: 
  Country: None (occurrence: None)
  Receive Date: 20091002
  Receipt Date: 20090105
  Transmission Date: 20100525
  Serious: No
  Sender: FDA-Public Use
  Company Number: US-ASTRAZENECA-2009UW00326

PATIENT
  Sex: Female
  Weight: 65.8 kg

DRUGS (3)
  1. ARIMIDEX [Suspect]
     Indication: BREAST CANCER
     Route: 048
  2. CALCIUM [Concomitant]
  3. FISH OIL [Concomitant]

REACTIONS (6)
  - ALOPECIA [None]
  - DRY THROAT [None]
  - ERYTHEMA [None]
  - NAIL DISORDER [None]
  - RASH [None]
  - SKIN DISORDER [None]
